FAERS Safety Report 4994460-5 (Version None)
Quarter: 2006Q1

REPORT INFORMATION
  Report Type: 
  Country: None (occurrence: None)
  Receive Date: 20060313
  Receipt Date: 20051117
  Transmission Date: 20060701
  Serious: No
  Sender: FDA-Public Use
  Company Number: 2005-BP-18587BP

PATIENT
  Age: 63 Year
  Sex: Female

DRUGS (10)
  1. SPIRIVA [Suspect]
     Indication: EMPHYSEMA
     Dosage: 18 MCG (18 MCG,1 IN 1 D),IH
     Dates: start: 20051009, end: 20051012
  2. SPIRIVA [Suspect]
     Indication: LUNG ABSCESS
     Dosage: 18 MCG (18 MCG,1 IN 1 D),IH
     Dates: start: 20051009, end: 20051012
  3. AUGMENTIN '125' [Concomitant]
  4. QVAR (BECLOMETASONE DIPROPIONATE) [Concomitant]
  5. PROVENTIL (SALBUTAMOL SULFATE) [Concomitant]
  6. OXYGEN (OXYGEN) [Concomitant]
  7. FLUCONAZOLE [Concomitant]
  8. CLOTRIMAZOLE [Concomitant]
  9. PREDNISONE TAB [Concomitant]
  10. ALBUTEROL SULFATE AUTOHALER [Concomitant]

REACTIONS (1)
  - CRYING [None]
